FAERS Safety Report 15663773 (Version 2)
Quarter: 2018Q4

REPORT INFORMATION
  Report Type: Report from Study
  Country: None (occurrence: CH)
  Receive Date: 20181128
  Receipt Date: 20181203
  Transmission Date: 20190205
  Serious: Yes (Death, Other)
  Sender: FDA-Public Use
  Company Number: CH-ABBVIE-17K-151-2192529-00

PATIENT
  Age: 73 Year
  Sex: Male

DRUGS (12)
  1. DUODOPA [Suspect]
     Active Substance: CARBIDOPA\LEVODOPA
     Dosage: MD: 4.5ML, CD: 2.0ML/H(DAY) , CD: 1.3ML/H(NIGHT), ED: 1.5ML
     Route: 050
     Dates: start: 201712, end: 201712
  2. MAGNESIOCARD [Concomitant]
     Active Substance: MAGNESIUM ASPARTATE HYDROCHLORIDE
     Indication: PRODUCT USED FOR UNKNOWN INDICATION
     Dosage: FREQUENCY TEXT :IN THE MORNING
  3. URBANYL [Concomitant]
     Active Substance: CLOBAZAM
     Indication: PRODUCT USED FOR UNKNOWN INDICATION
     Dosage: FREQUENCY TEXT : MORNING, NOON, EVENING
  4. PENTHOTAL [Suspect]
     Active Substance: THIOPENTAL SODIUM
     Indication: ASSISTED SUICIDE
     Route: 065
     Dates: start: 20181122
  5. ATENOLOL. [Concomitant]
     Active Substance: ATENOLOL
     Indication: PRODUCT USED FOR UNKNOWN INDICATION
     Dosage: FREQUENCY TEXT :IN THE MORNING
  6. PHENYTOIN. [Concomitant]
     Active Substance: PHENYTOIN
     Indication: PRODUCT USED FOR UNKNOWN INDICATION
     Dosage: FREQUENCY TEXT :1 IN THE MORNING, 1 IN THE EVENING
  7. LISITRIL [Concomitant]
     Active Substance: LISINOPRIL
     Indication: PRODUCT USED FOR UNKNOWN INDICATION
     Dosage: FREQUENCY TEXT : IN THE MORNING
  8. METFORMIN [Concomitant]
     Active Substance: METFORMIN HYDROCHLORIDE
     Indication: PRODUCT USED FOR UNKNOWN INDICATION
     Dosage: FREQUENCY TEXT : IN THE MORNING
  9. PANTOPRAZOL [Concomitant]
     Active Substance: PANTOPRAZOLE SODIUM
     Indication: PRODUCT USED FOR UNKNOWN INDICATION
     Dosage: FREQUENCY TEXT : IN THE MORNING
  10. DUODOPA [Suspect]
     Active Substance: CARBIDOPA\LEVODOPA
     Indication: PARKINSON^S DISEASE
     Dosage: MD: 4.5ML, CD DAY: 1.8ML/H, CD NIGHT: 1.2ML/H, EXTRA DOSE: 1.5ML
     Route: 050
     Dates: start: 20171030, end: 201712
  11. DISTRANEURIN [Concomitant]
     Active Substance: CLOMETHIAZOLE
     Indication: PRODUCT USED FOR UNKNOWN INDICATION
     Dosage: FREQUENCY TEXT : IN THE EVENING
  12. DUODOPA [Suspect]
     Active Substance: CARBIDOPA\LEVODOPA
     Dosage: MD: 4.5ML, CD DAY: 1.9ML/H, CD NIGHT: 1.2ML/H, EXTRA DOSE: 1.5ML
     Route: 050
     Dates: start: 201712, end: 201712

REACTIONS (4)
  - Assisted suicide [Fatal]
  - Akinesia [Recovering/Resolving]
  - Suicidal ideation [Recovered/Resolved]
  - On and off phenomenon [Unknown]

NARRATIVE: CASE EVENT DATE: 2017
